FAERS Safety Report 13896106 (Version 1)
Quarter: 2017Q3

REPORT INFORMATION
  Report Type: Spontaneous
  Country: US (occurrence: None)
  Receive Date: 20170816
  Receipt Date: 20170816
  Transmission Date: 20171127
  Serious: Yes (Disabling, Other)
  Sender: FDA-Public Use
  Company Number: None

PATIENT
  Age: 84 Year
  Sex: Female
  Weight: 66.68 kg

DRUGS (11)
  1. LETROZOLE. [Concomitant]
     Active Substance: LETROZOLE
  2. POTASSIUM [Concomitant]
     Active Substance: POTASSIUM
  3. ETHEMBUTOL HCL [Suspect]
     Active Substance: ETHAMBUTOL HYDROCHLORIDE
     Indication: MYCOBACTERIUM AVIUM COMPLEX INFECTION
     Dosage: ?          QUANTITY:2 ;?
     Route: 048
     Dates: start: 20150404, end: 20170426
  4. LOSARTAN. [Concomitant]
     Active Substance: LOSARTAN
  5. DIGOXIN. [Concomitant]
     Active Substance: DIGOXIN
  6. TYLENOL [Concomitant]
     Active Substance: ACETAMINOPHEN
  7. CARVEDILOL. [Concomitant]
     Active Substance: CARVEDILOL
  8. TEMAZEPAM. [Concomitant]
     Active Substance: TEMAZEPAM
  9. MULTIVITAMIN-SR [Concomitant]
  10. PRAMIPEXOLE. [Concomitant]
     Active Substance: PRAMIPEXOLE
  11. LEVOTHYROXINE. [Concomitant]
     Active Substance: LEVOTHYROXINE

REACTIONS (2)
  - Blindness [None]
  - Dyschromatopsia [None]

NARRATIVE: CASE EVENT DATE: 20170216
